FAERS Safety Report 11968824 (Version 5)
Quarter: 2016Q3

REPORT INFORMATION
  Report Type: Report from Study
  Country: BR (occurrence: BR)
  Receive Date: 20160128
  Receipt Date: 20160907
  Transmission Date: 20161109
  Serious: Yes (Hospitalization, Other)
  Sender: FDA-Public Use
  Company Number: BR-AMGEN-BRASP2016004905

PATIENT
  Age: 35 Year
  Sex: Female
  Weight: 72.6 kg

DRUGS (1)
  1. BLINATUMOMAB [Suspect]
     Active Substance: BLINATUMOMAB
     Indication: PRODUCT USED FOR UNKNOWN INDICATION
     Dosage: 18 MUG, 48 HRS
     Route: 042
     Dates: start: 20160112, end: 20160211

REACTIONS (9)
  - Erythema [Recovered/Resolved]
  - Arthralgia [Recovering/Resolving]
  - Rash [Unknown]
  - Cytokine release syndrome [Recovering/Resolving]
  - Pyrexia [Recovered/Resolved]
  - Tremor [Recovered/Resolved]
  - Transaminases [Recovering/Resolving]
  - Genital herpes [Recovering/Resolving]
  - Angioedema [Recovered/Resolved]

NARRATIVE: CASE EVENT DATE: 20160112
